FAERS Safety Report 7914399-2 (Version None)
Quarter: 2011Q4

REPORT INFORMATION
  Report Type: 
  Country: None (occurrence: None)
  Receive Date: 20111115
  Receipt Date: 20111102
  Transmission Date: 20120403
  Serious: Yes (Hospitalization)
  Sender: FDA-Public Use
  Company Number: US-ELI_LILLY_AND_COMPANY-US201005002901

PATIENT
  Sex: Female

DRUGS (9)
  1. CRESTOR /01588602/ [Concomitant]
     Dosage: 10 MEQ, DAILY (1/D)
  2. ESTRADIOL [Concomitant]
     Dosage: 1 MG, DAILY (1/D)
  3. ANALGESICS [Concomitant]
  4. LOTREL [Concomitant]
  5. FORTEO [Suspect]
     Indication: OSTEOPOROSIS
     Dosage: 20 UG, DAILY (1/D)
     Dates: start: 20100312
  6. ROBAXIN [Concomitant]
     Dosage: 750 MG, AS NEEDED
  7. MICARDIS [Concomitant]
  8. HYDROCHLOROTHIAZIDE [Concomitant]
  9. VITAMIN D [Concomitant]

REACTIONS (1)
  - FRACTURE NONUNION [None]
